FAERS Safety Report 9816857 (Version 1)
Quarter: 2014Q1

REPORT INFORMATION
  Report Type: Spontaneous
  Country: US (occurrence: US)
  Receive Date: 20140114
  Receipt Date: 20140114
  Transmission Date: 20141002
  Serious: Yes (Death)
  Sender: FDA-Public Use
  Company Number: US-PFIZER INC-2014008207

PATIENT
  Age: 61 Year
  Sex: Male

DRUGS (6)
  1. FOLIC ACID [Suspect]
     Route: 065
  2. INSULIN [Suspect]
     Route: 065
  3. BUMETANIDE [Suspect]
     Route: 065
  4. IRON [Suspect]
  5. OMEPRAZOLE [Suspect]
  6. DIGOXIN [Suspect]

REACTIONS (1)
  - Completed suicide [Fatal]
